FAERS Safety Report 7902659-0 (Version None)
Quarter: 2011Q4

REPORT INFORMATION
  Report Type: 
  Country: None (occurrence: None)
  Receive Date: 20111108
  Receipt Date: 20111013
  Transmission Date: 20120403
  Serious: Yes (Hospitalization)
  Sender: FDA-Public Use
  Company Number: PHHY2011BE75193

PATIENT
  Sex: Female

DRUGS (4)
  1. MYCOPHENOLATE MOFETIL (CELLCEPT) [Concomitant]
     Dosage: 500 MG, 2 X 2 TABLET
  2. CERTICAN [Suspect]
     Indication: RENAL TRANSPLANT
     Dosage: UNK UKN, UNK
     Dates: start: 20110629, end: 20110817
  3. NEORAL [Concomitant]
     Dosage: 100 MG, DAILY
  4. NEORAL [Concomitant]
     Dosage: UNK UKN, UNK

REACTIONS (17)
  - INTERSTITIAL LUNG DISEASE [None]
  - COUGH [None]
  - CELLULITIS [None]
  - ASTHMA [None]
  - URINARY TRACT INFECTION [None]
  - LUNG INFILTRATION [None]
  - ANAEMIA [None]
  - OXYGEN SATURATION DECREASED [None]
  - PYREXIA [None]
  - FATIGUE [None]
  - MALAISE [None]
  - CHILLS [None]
  - BRONCHIECTASIS [None]
  - OBSTRUCTIVE AIRWAYS DISORDER [None]
  - PLEURAL EFFUSION [None]
  - DYSPNOEA [None]
  - PLEURISY [None]
